FAERS Safety Report 8868050 (Version 1)
Quarter: 2012Q4

REPORT INFORMATION
  Report Type: 
  Country: US (occurrence: US)
  Receive Date: 20121026
  Receipt Date: 20121026
  Transmission Date: 20130627
  Serious: No
  Sender: FDA-Public Use
  Company Number: US-AMGEN-USASP2012040674

PATIENT
  Sex: Female

DRUGS (8)
  1. ENBREL [Suspect]
     Indication: PRODUCT USED FOR UNKNOWN INDICATION
     Dosage: 50 mg, qwk
     Route: 058
     Dates: start: 2007
  2. CYMBALTA [Concomitant]
     Dosage: 20 mg, UNK
  3. PREMARIN VAGINAL [Concomitant]
     Dosage: 00.625 mg, UNK
  4. LORAZEPAM [Concomitant]
     Dosage: 0.5 mg, UNK
  5. OMEPRAZOLE [Concomitant]
     Dosage: 20 mg, UNK
  6. SIMVASTATIN [Concomitant]
     Dosage: 5 mg, UNK
  7. DICYCLOMINE                        /00068601/ [Concomitant]
     Dosage: 10 mg, UNK
  8. LAMICTAL [Concomitant]
     Dosage: 100 mg, UNK

REACTIONS (1)
  - Sinusitis [Unknown]
